FAERS Safety Report 16084646 (Version 1)
Quarter: 2019Q1

REPORT INFORMATION
  Report Type: Spontaneous
  Country: US (occurrence: US)
  Receive Date: 20190318
  Receipt Date: 20190318
  Transmission Date: 20190418
  Serious: No
  Sender: FDA-Public Use
  Company Number: US-TEVA-2019-US-1018887

PATIENT
  Age: 63 Year
  Sex: Female

DRUGS (1)
  1. ANASTROZOLE. [Suspect]
     Active Substance: ANASTROZOLE
     Indication: BREAST CANCER
     Route: 065

REACTIONS (12)
  - Pyrexia [Unknown]
  - Hypersensitivity [Unknown]
  - Oral discomfort [Unknown]
  - Arthralgia [Unknown]
  - Pruritus [Unknown]
  - Hot flush [Unknown]
  - Nausea [Unknown]
  - Tremor [Unknown]
  - Poor quality sleep [Unknown]
  - Eating disorder [Unknown]
  - Rash [Unknown]
  - Visual impairment [Unknown]

NARRATIVE: CASE EVENT DATE: 20180915
